FAERS Safety Report 4623914-6 (Version None)
Quarter: 2005Q1

REPORT INFORMATION
  Report Type: 
  Country: None (occurrence: None)
  Receive Date: 20050331
  Receipt Date: 20050127
  Transmission Date: 20050727
  Serious: Yes (Other)
  Sender: FDA-Public Use
  Company Number: JP-ROCHE-393960

PATIENT
  Age: 37 Year
  Sex: Male

DRUGS (7)
  1. CELLCEPT [Suspect]
     Route: 048
     Dates: start: 20040715, end: 20040814
  2. CELLCEPT [Suspect]
     Route: 048
     Dates: start: 20040903
  3. PROGRAF [Suspect]
     Route: 065
     Dates: start: 20040715, end: 20040814
  4. PROGRAF [Suspect]
     Route: 065
     Dates: start: 20040903
  5. METHYLPREDNISOLONE [Concomitant]
     Dates: start: 20040715
  6. CYCLOSPORINE [Concomitant]
     Dates: start: 20040815
  7. BREDININ [Concomitant]
     Route: 048
     Dates: start: 20040815

REACTIONS (2)
  - NON-CARDIAC CHEST PAIN [None]
  - RHABDOMYOLYSIS [None]
